FAERS Safety Report 20422742 (Version 1)
Quarter: 2022Q1

REPORT INFORMATION
  Report Type: Spontaneous
  Country: US (occurrence: US)
  Receive Date: 20220203
  Receipt Date: 20220203
  Transmission Date: 20220424
  Serious: No
  Sender: FDA-Public Use
  Company Number: US-PFIZER INC-2021620775

PATIENT
  Age: 84 Year
  Sex: Female
  Weight: 70.295 kg

DRUGS (1)
  1. TOVIAZ [Suspect]
     Active Substance: FESOTERODINE FUMARATE
     Dosage: 8 MG, 1X/DAY (AT NIGHT)

REACTIONS (1)
  - Therapeutic product effect incomplete [Unknown]
